FAERS Safety Report 6700332-8 (Version None)
Quarter: 2010Q2

REPORT INFORMATION
  Report Type: 
  Country: None (occurrence: None)
  Receive Date: 20100428
  Receipt Date: 20100420
  Transmission Date: 20101027
  Serious: Yes (Hospitalization)
  Sender: FDA-Public Use
  Company Number: CN-ROCHE-662302

PATIENT
  Age: 75 Year
  Sex: Female
  Weight: 38.8 kg

DRUGS (6)
  1. XELODA [Suspect]
     Indication: COLON CANCER
     Dosage: IN EVERY CYCLE, PATIENT TOOK THIS DRUG FOR 14 DAYS CONTINUOUSLY, AND HAD 7 DAYS OF REST.
     Route: 048
     Dates: start: 20090923, end: 20090925
  2. XELODA [Suspect]
     Dosage: IN EVERY CYCLE, PATIENT TOOK CAPECITABINE FOR 14 DAYS CONTINUOUSLY, AND HAD 7 DAYS OF REST.
     Route: 048
     Dates: start: 20090926, end: 20100201
  3. XELODA [Suspect]
     Dosage: IN EVERY CYCLE, PATIENT TOOK CAPECITABINE FOR 14 DAYS CONTINUOUSLY, AND HAD 7 DAYS OF REST.
     Route: 048
     Dates: start: 20100201, end: 20100315
  4. CHINESE MEDICINE NOS [Suspect]
     Dosage: BRAND NAME AS ^JIN LONG CAPSULE^.
     Route: 048
     Dates: start: 20091025, end: 20091101
  5. CHINESE MEDICINE NOS [Suspect]
     Dosage: BRAND NAME AS ^JIN LONG CAPSULE^.
     Route: 048
     Dates: start: 20100207
  6. CISPLATIN [Suspect]
     Indication: METASTASES TO OVARY
     Dosage: PELVIC INJECTION DURING THE OVARIOHYSTERECTOMY. DOSAGE WAS UNKNOWN
     Route: 042
     Dates: start: 20100316, end: 20100316

REACTIONS (5)
  - ABDOMINAL DISTENSION [None]
  - ASTHENIA [None]
  - DIARRHOEA [None]
  - METASTASES TO OVARY [None]
  - WHITE BLOOD CELL COUNT DECREASED [None]
